FAERS Safety Report 16098249 (Version 1)
Quarter: 2019Q1

REPORT INFORMATION
  Report Type: Spontaneous
  Country: GR (occurrence: GR)
  Receive Date: 20190321
  Receipt Date: 20190321
  Transmission Date: 20190418
  Serious: Yes (Death, Other)
  Sender: FDA-Public Use
  Company Number: PHHY2019GR062540

PATIENT
  Age: 64 Year
  Sex: Female

DRUGS (4)
  1. TIGECYCLINE. [Suspect]
     Active Substance: TIGECYCLINE
     Indication: ACINETOBACTER INFECTION
     Dosage: UNK
     Route: 042
  2. RIFAMPICIN [Suspect]
     Active Substance: RIFAMPIN
     Indication: ACINETOBACTER INFECTION
     Dosage: UNK
     Route: 065
  3. COLISTIMETHATE SODIUM. [Suspect]
     Active Substance: COLISTIMETHATE SODIUM
     Indication: ACINETOBACTER INFECTION
     Dosage: UNK
     Route: 065
  4. AMIKACIN. [Concomitant]
     Active Substance: AMIKACIN
     Indication: PRODUCT USED FOR UNKNOWN INDICATION
     Dosage: UNK
     Route: 065

REACTIONS (4)
  - Incorrect route of product administration [Fatal]
  - Condition aggravated [Fatal]
  - Death [Fatal]
  - Acinetobacter infection [Fatal]
